FAERS Safety Report 15317135 (Version 1)
Quarter: 2018Q3

REPORT INFORMATION
  Report Type: Report from Study
  Country: CA (occurrence: CA)
  Receive Date: 20180824
  Receipt Date: 20180824
  Transmission Date: 20181010
  Serious: Yes (Death)
  Sender: FDA-Public Use
  Company Number: CA-JNJFOC-20180830312

PATIENT
  Age: 77 Year
  Sex: Female
  Weight: 80 kg

DRUGS (1)
  1. STELARA [Suspect]
     Active Substance: USTEKINUMAB
     Indication: CROHN^S DISEASE
     Dosage: STRENGTH = 90 MG
     Route: 058
     Dates: start: 20170808, end: 20180524

REACTIONS (4)
  - Skin cancer [Fatal]
  - Tumour haemorrhage [Fatal]
  - Off label use [Unknown]
  - Product use in unapproved indication [Unknown]

NARRATIVE: CASE EVENT DATE: 20170808
